FAERS Safety Report 5420701-6 (Version None)
Quarter: 2007Q3

REPORT INFORMATION
  Report Type: 
  Country: None (occurrence: None)
  Receive Date: 20070816
  Receipt Date: 20070801
  Transmission Date: 20080115
  Serious: Yes (Other)
  Sender: FDA-Public Use
  Company Number: 6033911

PATIENT
  Age: 36 Year
  Sex: Female

DRUGS (5)
  1. SUCRALFATE [Suspect]
     Indication: GASTRITIS
     Dosage: MOTHER'S DAILY DOSE: 250 MG
     Route: 064
  2. IMIDAPRIL (IMIDAPRIL) [Suspect]
     Indication: HYPERTENSION
     Dosage: MOTHER'S DAILY DOSE: 5 MG
     Route: 064
  3. LORAZEPAM [Suspect]
     Indication: ANXIETY
     Dosage: MOTHER'S DAILY DOSE: 0,5 MG
     Route: 064
  4. BARNIDIPINE (BARNIDIPINE) [Suspect]
     Indication: HYPERTENSION
     Dosage: MOTHER'S DAILY DOSE: 10 MG
     Route: 064
  5. AMLODIPINE [Suspect]
     Indication: HYPERTENSION
     Dosage: MOTHER'S DAILY DOSE: 5 MG
     Route: 064

REACTIONS (5)
  - ABORTION INDUCED [None]
  - ANXIETY [None]
  - DRUG EXPOSURE DURING PREGNANCY [None]
  - GASTRITIS [None]
  - INTRA-UTERINE DEATH [None]
